FAERS Safety Report 4450419-8 (Version None)
Quarter: 2004Q3

REPORT INFORMATION
  Report Type: 
  Country: None (occurrence: None)
  Receive Date: 20040915
  Receipt Date: 20040913
  Transmission Date: 20050211
  Serious: Yes (Death)
  Sender: FDA-Public Use
  Company Number: 04-08-1204

PATIENT
  Age: 44 Year
  Sex: Male
  Weight: 60.3284 kg

DRUGS (6)
  1. CLOZAPINE [Suspect]
     Indication: SCHIZOAFFECTIVE DISORDER
     Dosage: 100-550MG QD ORAL
     Route: 048
     Dates: start: 20010401, end: 20040601
  2. DEPAKOTE [Suspect]
     Indication: SCHIZOAFFECTIVE DISORDER
     Dosage: 2500MG QD ORAL
     Route: 048
     Dates: start: 20030901, end: 20040601
  3. ASPIRIN [Concomitant]
  4. RANITIDINE [Concomitant]
  5. TERAZOSIN HCL [Suspect]
  6. ATENOLOL [Concomitant]

REACTIONS (2)
  - DRUG INTERACTION [None]
  - HEPATIC NEOPLASM MALIGNANT [None]
